FAERS Safety Report 12249678 (Version 3)
Quarter: 2016Q2

REPORT INFORMATION
  Report Type: Spontaneous
  Country: BR (occurrence: BR)
  Receive Date: 20160408
  Receipt Date: 20160411
  Transmission Date: 20160815
  Serious: Yes (Death, Hospitalization)
  Sender: FDA-Public Use
  Company Number: BR-SA-2016SA061074

PATIENT
  Sex: Male
  Weight: 78 kg

DRUGS (3)
  1. CLIKSTAR [Concomitant]
     Active Substance: CLIKSTAR
     Indication: DEVICE THERAPY
     Dates: end: 20140116
  2. LANTUS [Suspect]
     Active Substance: INSULIN GLARGINE
     Route: 065
  3. VIAGRA [Concomitant]
     Active Substance: SILDENAFIL CITRATE

REACTIONS (3)
  - Hospitalisation [Unknown]
  - Aneurysm [Fatal]
  - Headache [Unknown]
